FAERS Safety Report 8955879 (Version 1)
Quarter: 2012Q4

REPORT INFORMATION
  Report Type: 
  Country: CO (occurrence: CO)
  Receive Date: 20121210
  Receipt Date: 20121210
  Transmission Date: 20130627
  Serious: Yes (Other)
  Sender: FDA-Public Use
  Company Number: CO-PFIZER INC-2012306466

PATIENT
  Age: 12 Year
  Sex: Male

DRUGS (1)
  1. GENOTROPIN [Suspect]
     Indication: STATURE SHORT
     Dosage: 2.2 mg, once daily from Monday to Saturday and at 2.0 mg the Sunday
     Route: 058
     Dates: start: 2008, end: 201207

REACTIONS (2)
  - Limb deformity [Recovered/Resolved]
  - Limb deformity [Recovered/Resolved]
